FAERS Safety Report 16798940 (Version 2)
Quarter: 2019Q3

REPORT INFORMATION
  Report Type: Spontaneous
  Country: US (occurrence: US)
  Receive Date: 20190912
  Receipt Date: 20190919
  Transmission Date: 20191005
  Serious: No
  Sender: FDA-Public Use
  Company Number: US-HORIZON-KRY-0659-2019

PATIENT
  Age: 56 Year
  Sex: Female

DRUGS (2)
  1. COLCHICINE. [Concomitant]
     Active Substance: COLCHICINE
  2. KRYSTEXXA [Suspect]
     Active Substance: PEGLOTICASE
     Indication: GOUT
     Dosage: 8MG IV Q 2 WEEKS
     Route: 042
     Dates: start: 20190828

REACTIONS (4)
  - Swelling face [Recovered/Resolved]
  - Papule [Not Recovered/Not Resolved]
  - Gout [Unknown]
  - Rash macular [Recovered/Resolved]

NARRATIVE: CASE EVENT DATE: 201909
